FAERS Safety Report 7320250-4 (Version None)
Quarter: 2011Q1

REPORT INFORMATION
  Report Type: 
  Country: None (occurrence: None)
  Receive Date: 20110214
  Receipt Date: 20110202
  Transmission Date: 20110831
  Serious: Yes (Death, Hospitalization)
  Sender: FDA-Public Use
  Company Number: UTC-003721

PATIENT
  Age: 72 Year
  Sex: Female
  Weight: 70.5 kg

DRUGS (3)
  1. TYVASO [Suspect]
     Indication: PULMONARY HYPERTENSION
     Dosage: 54 MCG, INHALATION
     Route: 055
     Dates: start: 20100706
  2. REVATIO [Concomitant]
  3. TRACLEER [Concomitant]

REACTIONS (1)
  - PNEUMONIA [None]
